FAERS Safety Report 5098359-8 (Version None)
Quarter: 2006Q3

REPORT INFORMATION
  Report Type: 
  Country: None (occurrence: None)
  Receive Date: 20060906
  Receipt Date: 20060901
  Transmission Date: 20061208
  Serious: Yes (Hospitalization)
  Sender: FDA-Public Use
  Company Number: AU-BRISTOL-MYERS SQUIBB COMPANY-13495817

PATIENT
  Age: 38 Year

DRUGS (5)
  1. CARBOPLATIN [Suspect]
     Indication: NON-SMALL CELL LUNG CANCER
     Route: 042
     Dates: end: 20060817
  2. TAXOL [Suspect]
     Indication: NON-SMALL CELL LUNG CANCER
     Route: 042
     Dates: end: 20060817
  3. GENTAMICIN [Concomitant]
     Indication: ANTIBIOTIC PROPHYLAXIS
  4. TIMENTIN [Concomitant]
     Indication: ANTIBIOTIC PROPHYLAXIS
  5. PARACETAMOL [Concomitant]
     Indication: PYREXIA

REACTIONS (1)
  - FEBRILE NEUTROPENIA [None]
